FAERS Safety Report 7038449-3 (Version None)
Quarter: 2010Q4

REPORT INFORMATION
  Report Type: 
  Country: None (occurrence: None)
  Receive Date: 20101011
  Receipt Date: 20100602
  Transmission Date: 20110411
  Serious: Yes (Other)
  Sender: FDA-Public Use
  Company Number: US-PFIZER INC-2010069130

PATIENT
  Sex: Female
  Weight: 67.12 kg

DRUGS (9)
  1. NEURONTIN [Suspect]
     Indication: NERVE INJURY
     Dosage: UNK
  2. NIASPAN [Suspect]
     Indication: HIGH DENSITY LIPOPROTEIN INCREASED
     Dosage: 500 MG, UNK
     Dates: start: 20091026
  3. ACETYLSALICYLIC ACID [Concomitant]
     Indication: ANTIPLATELET THERAPY
     Dosage: UNK
  4. CARVEDILOL [Concomitant]
     Indication: AORTIC STENOSIS
     Dosage: UNK
  5. CARVEDILOL [Concomitant]
     Indication: HEART VALVE STENOSIS
  6. SPIRONOLACTONE [Concomitant]
     Indication: SWELLING
     Dosage: UNK
  7. ROSUVASTATIN [Concomitant]
     Indication: BLOOD CHOLESTEROL INCREASED
     Dosage: UNK
  8. AMLODIPINE/VALSARTAN [Concomitant]
     Indication: HYPERTENSION
     Dosage: UNK
  9. CLOPIDOGREL [Concomitant]
     Indication: TRANSIENT ISCHAEMIC ATTACK
     Dosage: UNK

REACTIONS (2)
  - SKIN BURNING SENSATION [None]
  - SWELLING [None]
